FAERS Safety Report 7533027-1 (Version None)
Quarter: 2011Q2

REPORT INFORMATION
  Report Type: 
  Country: None (occurrence: None)
  Receive Date: 20110608
  Receipt Date: 20110526
  Transmission Date: 20111010
  Serious: Yes (Other)
  Sender: FDA-Public Use
  Company Number: PHHY2011US45587

PATIENT
  Age: 89 Year
  Sex: Male

DRUGS (2)
  1. IMATINIB MESYLATE [Suspect]
     Indication: MALIGNANT MELANOMA
     Dosage: 400 MG, BID
  2. IMATINIB MESYLATE [Suspect]
     Dosage: 400 MG, DAILY

REACTIONS (6)
  - SKIN MASS [None]
  - INFLAMMATION [None]
  - PRURITUS [None]
  - HYPERKERATOSIS [None]
  - KERATOACANTHOMA [None]
  - RASH MACULO-PAPULAR [None]
